FAERS Safety Report 25739346 (Version 2)
Quarter: 2025Q4

REPORT INFORMATION
  Report Type: Spontaneous
  Country: US (occurrence: US)
  Receive Date: 20250829
  Receipt Date: 20251015
  Transmission Date: 20260117
  Serious: No
  Sender: GERON CORP
  Company Number: US-GERON CORPORATION-US-GER-25-000187

PATIENT
  Sex: Male

DRUGS (1)
  1. RYTELO [Suspect]
     Active Substance: IMETELSTAT SODIUM
     Indication: Product used for unknown indication
     Dosage: UNK MILLIGRAM/KILOGRAM, UNK
     Route: 042
     Dates: end: 20250731

REACTIONS (2)
  - Disease progression [Unknown]
  - Drug ineffective [Unknown]
